FAERS Safety Report 15228703 (Version 1)
Quarter: 2018Q3

REPORT INFORMATION
  Report Type: Spontaneous
  Country: SE (occurrence: SE)
  Receive Date: 20180801
  Receipt Date: 20180801
  Transmission Date: 20181010
  Serious: Yes (Other)
  Sender: FDA-Public Use
  Company Number: PHHY2018SE061286

PATIENT
  Age: 42 Year
  Sex: Female

DRUGS (1)
  1. BISOPROLOL [Suspect]
     Active Substance: BISOPROLOL
     Indication: MIGRAINE
     Dosage: 1 OT, QD (0.5?1X1)
     Route: 065
     Dates: start: 20180315

REACTIONS (3)
  - Rash [Recovering/Resolving]
  - Tinnitus [Recovered/Resolved]
  - Myalgia [Recovering/Resolving]

NARRATIVE: CASE EVENT DATE: 2018
